FAERS Safety Report 8008475-6 (Version None)
Quarter: 2011Q4

REPORT INFORMATION
  Report Type: 
  Country: None (occurrence: None)
  Receive Date: 20111227
  Receipt Date: 20111214
  Transmission Date: 20120403
  Serious: Yes (Hospitalization, Other)
  Sender: FDA-Public Use
  Company Number: US-ROCHE-791092

PATIENT
  Sex: Male
  Weight: 63.56 kg

DRUGS (1)
  1. ACCUTANE [Suspect]
     Indication: ACNE
     Dosage: 40 MG ON ODD AND 80 MG ON EVEN DAYS
     Dates: start: 20010101, end: 20020101

REACTIONS (11)
  - COLITIS [None]
  - INFLAMMATORY BOWEL DISEASE [None]
  - ANXIETY [None]
  - CHAPPED LIPS [None]
  - COLITIS ULCERATIVE [None]
  - ACNE [None]
  - IRRITABLE BOWEL SYNDROME [None]
  - BLOOD TRIGLYCERIDES INCREASED [None]
  - PROCTITIS [None]
  - DEPRESSION [None]
  - DRY SKIN [None]
